FAERS Safety Report 8070936-1 (Version None)
Quarter: 2012Q1

REPORT INFORMATION
  Report Type: 
  Country: None (occurrence: None)
  Receive Date: 20120119
  Receipt Date: 20120113
  Transmission Date: 20120608
  Serious: Yes (Hospitalization)
  Sender: FDA-Public Use
  Company Number: ACO_28986_2012

PATIENT
  Age: 62 Year
  Sex: Male

DRUGS (4)
  1. COPAXONE [Concomitant]
  2. OMEPRAZOLE [Concomitant]
  3. AMPYRA [Suspect]
     Indication: PRODUCT USED FOR UNKNOWN INDICATION
     Dosage: 10 MG, BID
     Dates: start: 20110701
  4. TIZANIDINE HCL [Concomitant]

REACTIONS (1)
  - EYE PAIN [None]
